FAERS Safety Report 24917192 (Version 1)
Quarter: 2025Q1

REPORT INFORMATION
  Report Type: Spontaneous
  Country: US (occurrence: None)
  Receive Date: 20250201
  Receipt Date: 20250201
  Transmission Date: 20250409
  Serious: Yes (Disabling)
  Sender: FDA-CTU
  Company Number: None

PATIENT
  Age: 69 Year
  Sex: Female
  Weight: 65.25 kg

DRUGS (10)
  1. PROLIA [Suspect]
     Active Substance: DENOSUMAB
     Indication: Bone density abnormal
     Route: 030
     Dates: start: 20211201, end: 20231201
  2. LEVOTHYROXINE SODIUM [Concomitant]
     Active Substance: LEVOTHYROXINE SODIUM
  3. LISINOPRIL [Concomitant]
     Active Substance: LISINOPRIL
  4. ZETIA [Concomitant]
     Active Substance: EZETIMIBE
  5. ELIQUIS [Concomitant]
     Active Substance: APIXABAN
  6. ATORVASTATIN [Concomitant]
     Active Substance: ATORVASTATIN
  7. ALENDRONATE SODIUM [Concomitant]
     Active Substance: ALENDRONATE SODIUM
  8. GABAPENTIN [Concomitant]
     Active Substance: GABAPENTIN
  9. MAGNESIUM GLYCINATE [Concomitant]
     Active Substance: MAGNESIUM GLYCINATE
  10. VITAMINS [Concomitant]
     Active Substance: VITAMINS

REACTIONS (6)
  - Therapy interrupted [None]
  - Dysstasia [None]
  - Impaired quality of life [None]
  - General physical health deterioration [None]
  - Spinal osteoarthritis [None]
  - Body height decreased [None]

NARRATIVE: CASE EVENT DATE: 20241113
